FAERS Safety Report 5277185-0 (Version None)
Quarter: 2007Q1

REPORT INFORMATION
  Report Type: 
  Country: None (occurrence: None)
  Receive Date: 20070327
  Receipt Date: 20070315
  Transmission Date: 20070707
  Serious: Yes (Life-Threatening)
  Sender: FDA-Public Use
  Company Number: 2007CG00441

PATIENT
  Age: 1008 Day
  Sex: Female
  Weight: 7.6 kg

DRUGS (7)
  1. DIPRIVAN [Suspect]
     Indication: SEDATION
     Route: 042
     Dates: start: 20061219
  2. BRICANYL [Concomitant]
     Dates: start: 20061218
  3. CLAMOXYL [Concomitant]
     Dates: start: 20061218
  4. BECOTIDE [Concomitant]
     Dates: start: 20061218
  5. HYPNOVEL [Concomitant]
     Dates: start: 20061219
  6. VENTOLIN [Concomitant]
     Dates: start: 20061219
  7. SOLU-MEDROL [Concomitant]
     Dates: start: 20061219

REACTIONS (1)
  - LACTIC ACIDOSIS [None]
